FAERS Safety Report 6407527-1 (Version None)
Quarter: 2009Q4

REPORT INFORMATION
  Report Type: 
  Country: None (occurrence: None)
  Receive Date: 20091020
  Receipt Date: 20091008
  Transmission Date: 20100525
  Serious: Yes (Death, Hospitalization)
  Sender: FDA-Public Use
  Company Number: FR-ELI_LILLY_AND_COMPANY-FR200910002006

PATIENT
  Age: 66 Year
  Sex: Female

DRUGS (5)
  1. CYMBALTA [Suspect]
     Dosage: 60 MG, DAILY (1/D)
     Route: 048
     Dates: start: 20090401
  2. LEXOMIL [Concomitant]
     Indication: ANXIETY
     Route: 048
  3. MEPRONIZINE [Concomitant]
     Indication: INSOMNIA
     Route: 048
  4. SINGULAIR [Concomitant]
     Indication: ASTHMA
  5. CORTISONE [Concomitant]
     Indication: INFLAMMATORY PAIN

REACTIONS (2)
  - COMA [None]
  - DEATH [None]
